FAERS Safety Report 8261597-7 (Version None)
Quarter: 2012Q2

REPORT INFORMATION
  Report Type: 
  Country: None (occurrence: None)
  Receive Date: 20120405
  Receipt Date: 20120326
  Transmission Date: 20120825
  Serious: Yes (Hospitalization)
  Sender: FDA-Public Use
  Company Number: CELGENEUS-087-21880-11010918

PATIENT
  Sex: Female
  Weight: 38.8 kg

DRUGS (42)
  1. REVLIMID [Suspect]
     Dosage: 5 MILLIGRAM
     Route: 048
     Dates: start: 20110820, end: 20110826
  2. DEXAMETHASONE ACETATE [Suspect]
     Dosage: 20 MILLIGRAM
     Route: 048
     Dates: start: 20110414, end: 20110428
  3. FAMOTIDINE [Concomitant]
     Indication: PROPHYLAXIS
     Dosage: 40 MILLIGRAM
     Route: 048
     Dates: start: 20100906, end: 20110802
  4. FAMOTIDINE D [Concomitant]
     Indication: PROPHYLAXIS
     Dosage: 40 MILLIGRAM
     Route: 048
     Dates: start: 20110803, end: 20110928
  5. REVLIMID [Suspect]
     Dosage: 5 MILLIGRAM
     Route: 048
     Dates: start: 20110512, end: 20110601
  6. DEXAMETHASONE ACETATE [Suspect]
     Dosage: 20 MILLIGRAM
     Route: 048
     Dates: start: 20101125, end: 20101203
  7. DEXAMETHASONE ACETATE [Suspect]
     Dosage: 20 MILLIGRAM
     Route: 048
     Dates: start: 20110217, end: 20110303
  8. PURSENNID [Concomitant]
     Indication: PROPHYLAXIS
     Dosage: 24 MILLIGRAM
     Route: 048
     Dates: start: 20101027, end: 20110316
  9. PURSENNID [Concomitant]
     Dosage: 12 MILLIGRAM
     Route: 048
     Dates: start: 20110317, end: 20110510
  10. FENTANYL-100 [Concomitant]
     Indication: MULTIPLE MYELOMA
     Dosage: 6.3 MILLIGRAM
     Route: 062
     Dates: start: 20101006, end: 20101222
  11. REVLIMID [Suspect]
     Dosage: 10 MILLIGRAM
     Route: 048
     Dates: start: 20101223, end: 20110112
  12. REVLIMID [Suspect]
     Dosage: 10 MILLIGRAM
     Route: 048
     Dates: start: 20110120, end: 20110209
  13. REVLIMID [Suspect]
     Dosage: 5 MILLIGRAM
     Route: 048
     Dates: start: 20110609, end: 20110629
  14. DEPAS [Concomitant]
     Dosage: .5 MILLIGRAM
     Route: 048
     Dates: start: 20100906, end: 20110830
  15. FLUCONAZOLE [Concomitant]
     Indication: PROPHYLAXIS
     Dosage: 100 MILLIGRAM
     Route: 048
     Dates: start: 20110831, end: 20110928
  16. ETODOLAC [Concomitant]
     Indication: MULTIPLE MYELOMA
     Dosage: 2 TABLET
     Route: 048
     Dates: start: 20110831, end: 20110928
  17. OXYCONTIN [Concomitant]
     Indication: MULTIPLE MYELOMA
     Dosage: 50 MILLIGRAM
     Route: 048
     Dates: start: 20100906, end: 20101006
  18. ASPIRIN [Concomitant]
     Indication: PROPHYLAXIS
     Dosage: 100 MILLIGRAM
     Route: 048
     Dates: start: 20100906, end: 20110928
  19. FENTANYL-100 [Concomitant]
     Dosage: 6.3 MILLIGRAM
     Route: 062
     Dates: start: 20101222, end: 20110119
  20. ZOPICLONE [Concomitant]
     Dosage: 7.5 MILLIGRAM
     Route: 048
     Dates: start: 20110831, end: 20110928
  21. REVLIMID [Suspect]
     Dosage: 20 MILLIGRAM
     Route: 048
     Dates: start: 20101125, end: 20101215
  22. DEXAMETHASONE ACETATE [Suspect]
     Indication: MULTIPLE MYELOMA
     Dosage: 20 MILLIGRAM
     Route: 048
     Dates: start: 20100929, end: 20101014
  23. DEXAMETHASONE ACETATE [Suspect]
     Dosage: 20 MILLIGRAM
     Route: 048
     Dates: start: 20101209, end: 20101209
  24. SULPIRIDE [Concomitant]
     Indication: PROPHYLAXIS
     Dosage: 150 MILLIGRAM
     Route: 048
     Dates: start: 20110803, end: 20110928
  25. REVLIMID [Suspect]
     Dosage: 5 MILLIGRAM
     Route: 048
     Dates: start: 20110217, end: 20110309
  26. REVLIMID [Suspect]
     Dosage: 5 MILLIGRAM
     Route: 048
     Dates: start: 20110707, end: 20110716
  27. DEXAMETHASONE ACETATE [Suspect]
     Dosage: 20 MILLIGRAM
     Route: 048
     Dates: start: 20101223, end: 20110106
  28. ETODOLAC [Concomitant]
     Indication: MULTIPLE MYELOMA
     Dosage: 400 MILLIGRAM
     Route: 048
     Dates: start: 20100906, end: 20110830
  29. FENTANYL-100 [Concomitant]
     Dosage: 2.1 MILLIGRAM
     Route: 062
     Dates: start: 20110511, end: 20110928
  30. REVLIMID [Suspect]
     Dosage: 20 MILLIGRAM
     Route: 048
     Dates: start: 20101028, end: 20101117
  31. REVLIMID [Suspect]
     Dosage: 5 MILLIGRAM
     Route: 048
     Dates: start: 20110317, end: 20110406
  32. DEXAMETHASONE ACETATE [Suspect]
     Dosage: 20 MILLIGRAM
     Route: 048
     Dates: start: 20101028, end: 20101112
  33. DEXAMETHASONE ACETATE [Suspect]
     Dosage: 20 MILLIGRAM
     Route: 048
     Dates: start: 20110317, end: 20110331
  34. MILMAG [Concomitant]
     Indication: PROPHYLAXIS
     Dosage: 1050 MILLIGRAM
     Route: 048
     Dates: start: 20100906, end: 20110928
  35. ETIZOLAM [Concomitant]
     Dosage: .5 MILLIGRAM
     Route: 048
     Dates: start: 20110831, end: 20110908
  36. REVLIMID [Suspect]
     Indication: MULTIPLE MYELOMA
     Dosage: 25 MILLIGRAM
     Route: 048
     Dates: start: 20100929, end: 20101019
  37. REVLIMID [Suspect]
     Dosage: 5 MILLIGRAM
     Route: 048
     Dates: start: 20110414, end: 20110504
  38. REVLIMID [Suspect]
     Dosage: 5 MILLIGRAM
     Route: 048
     Dates: start: 20110927, end: 20111017
  39. DEXAMETHASONE ACETATE [Suspect]
     Dosage: 20 MILLIGRAM
     Route: 048
     Dates: start: 20110120, end: 20110203
  40. DIFLUCAN [Concomitant]
     Indication: PROPHYLAXIS
     Dosage: 50 MILLIGRAM
     Route: 048
     Dates: start: 20100906, end: 20110830
  41. AMOBAN [Concomitant]
     Dosage: 7.5 MILLIGRAM
     Route: 048
     Dates: start: 20100906, end: 20110830
  42. FENTANYL-100 [Concomitant]
     Dosage: 8.4 MILLIGRAM
     Route: 062
     Dates: start: 20110122

REACTIONS (8)
  - BLOOD IMMUNOGLOBULIN G DECREASED [None]
  - PNEUMONIA [None]
  - BLOOD POTASSIUM INCREASED [None]
  - NASOPHARYNGITIS [None]
  - RENAL IMPAIRMENT [None]
  - ENTEROCOLITIS [None]
  - MALAISE [None]
  - OROPHARYNGEAL PAIN [None]
